FAERS Safety Report 20920396 (Version 2)
Quarter: 2022Q3

REPORT INFORMATION
  Report Type: Spontaneous
  Country: US (occurrence: US)
  Receive Date: 20220606
  Receipt Date: 20220701
  Transmission Date: 20221027
  Serious: No
  Sender: FDA-Public Use
  Company Number: US-PFIZER INC-202200795635

PATIENT
  Age: 36 Year
  Sex: Male

DRUGS (8)
  1. PAXLOVID [Suspect]
     Active Substance: NIRMATRELVIR\RITONAVIR
     Indication: COVID-19 treatment
     Dosage: UNK
     Dates: start: 202205, end: 202205
  2. XANAX XR [Concomitant]
     Active Substance: ALPRAZOLAM
     Dosage: 0.5 MG
     Dates: start: 20200101
  3. TRAZODONE [Concomitant]
     Active Substance: TRAZODONE HYDROCHLORIDE
     Dosage: 125 MG
     Dates: start: 20200101
  4. FLONASE [Concomitant]
     Active Substance: FLUTICASONE PROPIONATE
     Dosage: UNK
     Dates: start: 20200101
  5. VYVANSE [Concomitant]
     Active Substance: LISDEXAMFETAMINE DIMESYLATE
     Dosage: 40 MG
     Dates: start: 20200101
  6. LAMICTAL [Concomitant]
     Active Substance: LAMOTRIGINE
     Dosage: 100 MG
     Dates: start: 20210101
  7. PEPCID AC [Concomitant]
     Active Substance: FAMOTIDINE
     Dosage: 40 MG
     Dates: start: 20200101
  8. SINGULAIR [Concomitant]
     Active Substance: MONTELUKAST SODIUM
     Dosage: 10 MG
     Dates: start: 20200101

REACTIONS (5)
  - Fatigue [Not Recovered/Not Resolved]
  - Nasal congestion [Not Recovered/Not Resolved]
  - Nasopharyngitis [Not Recovered/Not Resolved]
  - Headache [Not Recovered/Not Resolved]
  - Pain [Not Recovered/Not Resolved]

NARRATIVE: CASE EVENT DATE: 20220601
